FAERS Safety Report 6580394-1 (Version None)
Quarter: 2010Q1

REPORT INFORMATION
  Report Type: 
  Country: None (occurrence: None)
  Receive Date: 20100212
  Receipt Date: 20100203
  Transmission Date: 20100710
  Serious: Yes (Other)
  Sender: FDA-Public Use
  Company Number: PHHY2010GB07022

PATIENT

DRUGS (1)
  1. FEMARA [Suspect]

REACTIONS (5)
  - HALLUCINATION, OLFACTORY [None]
  - INAPPROPRIATE AFFECT [None]
  - PRESSURE OF SPEECH [None]
  - PSYCHOMOTOR HYPERACTIVITY [None]
  - PSYCHOTIC DISORDER [None]
